FAERS Safety Report 8814032 (Version 1)
Quarter: 2012Q4

REPORT INFORMATION
  Report Type: 
  Country: US (occurrence: US)
  Receive Date: 20120928
  Receipt Date: 20120928
  Transmission Date: 20130627
  Serious: No
  Sender: FDA-Public Use
  Company Number: US-PFIZER INC-2012237859

PATIENT
  Age: 39 Year
  Sex: Female

DRUGS (1)
  1. INLYTA [Suspect]
     Indication: RENAL DISORDER
     Dosage: 3 mg, 2x/day
     Route: 048
     Dates: start: 20120622

REACTIONS (3)
  - Nausea [Unknown]
  - Dyspepsia [Unknown]
  - Hypertension [Unknown]
